FAERS Safety Report 13540540 (Version 2)
Quarter: 2017Q2

REPORT INFORMATION
  Report Type: Spontaneous
  Country: BR (occurrence: BR)
  Receive Date: 20170512
  Receipt Date: 20170627
  Transmission Date: 20170830
  Serious: Yes (Death, Hospitalization, Other)
  Sender: FDA-Public Use
  Company Number: BR-ALEXION-A201705105

PATIENT
  Sex: Female

DRUGS (3)
  1. SOLIRIS [Suspect]
     Active Substance: ECULIZUMAB
     Dosage: 1200 MG, Q2W
     Route: 042
     Dates: start: 20160825
  2. VEDOLIZUMAB [Concomitant]
     Active Substance: VEDOLIZUMAB
     Indication: COLITIS ULCERATIVE
     Dosage: 300 MG, EVERY 8 WEEKS
     Route: 042
  3. SOLIRIS [Suspect]
     Active Substance: ECULIZUMAB
     Indication: HAEMOLYTIC URAEMIC SYNDROME
     Dosage: 900 MG, QW FOR FOUR WEEKS
     Route: 042
     Dates: start: 20160723, end: 20160813

REACTIONS (10)
  - Condition aggravated [Unknown]
  - Thrombocytopenia [Unknown]
  - Colitis ulcerative [Unknown]
  - Diarrhoea haemorrhagic [Not Recovered/Not Resolved]
  - Back pain [Unknown]
  - Haemolytic anaemia [Unknown]
  - Anaemia [Not Recovered/Not Resolved]
  - Immunosuppression [Not Recovered/Not Resolved]
  - Ischaemia [Fatal]
  - Shock [Unknown]
